FAERS Safety Report 6550989-X (Version None)
Quarter: 2010Q1

REPORT INFORMATION
  Report Type: 
  Country: None (occurrence: None)
  Receive Date: 20100122
  Receipt Date: 20100122
  Transmission Date: 20100710
  Serious: No
  Sender: FDA-Public Use
  Company Number: None

PATIENT
  Age: 62 Year
  Sex: Male
  Weight: 73.2 kg

DRUGS (1)
  1. IOVERSOL [Suspect]
     Indication: ENDOSCOPY
     Dosage: 350 MG ONCE IV
     Route: 042
     Dates: start: 20090820, end: 20090820

REACTIONS (9)
  - ABDOMINAL DISCOMFORT [None]
  - ABDOMINAL PAIN [None]
  - ANGIOEDEMA [None]
  - CONTRAST MEDIA ALLERGY [None]
  - DIZZINESS [None]
  - NAUSEA [None]
  - TACHYCARDIA [None]
  - THROAT TIGHTNESS [None]
  - VOMITING [None]
